FAERS Safety Report 18673568 (Version 1)
Quarter: 2020Q4

REPORT INFORMATION
  Report Type: Spontaneous
  Country: US (occurrence: US)
  Receive Date: 20201228
  Receipt Date: 20201228
  Transmission Date: 20210114
  Serious: Yes (Hospitalization)
  Sender: FDA-Public Use
  Company Number: US-AMNEAL PHARMACEUTICALS-2020-AMRX-03997

PATIENT
  Age: 19 Year
  Sex: Female
  Weight: 67 kg

DRUGS (1)
  1. BUPROPION HYDROCHLORIDE SR [Suspect]
     Active Substance: BUPROPION HYDROCHLORIDE
     Indication: PRODUCT USED FOR UNKNOWN INDICATION
     Dosage: 7.95 GRAM, SINGLE (150 MG 53 TABLETS)
     Route: 048

REACTIONS (4)
  - Serotonin syndrome [Recovered/Resolved]
  - Supraventricular tachycardia [Recovered/Resolved]
  - Generalised tonic-clonic seizure [Recovered/Resolved]
  - Intentional overdose [Unknown]
